FAERS Safety Report 7991450-5 (Version None)
Quarter: 2011Q4

REPORT INFORMATION
  Report Type: 
  Country: None (occurrence: None)
  Receive Date: 20111219
  Receipt Date: 20111212
  Transmission Date: 20120403
  Serious: Yes (Hospitalization)
  Sender: FDA-Public Use
  Company Number: US-BAYER-2011-065216

PATIENT
  Age: 19 Year
  Sex: Female
  Weight: 64.853 kg

DRUGS (4)
  1. YAZ [Suspect]
     Indication: CONTRACEPTION
     Dosage: UNK
     Dates: start: 20090126, end: 20090726
  2. SULFAMETHOXAZOLE AND TRIMETHOPRIM [Concomitant]
     Indication: ANTIBIOTIC THERAPY
  3. MOTRIN [Concomitant]
     Dosage: UNK
     Dates: start: 20090701
  4. NITROFURANTOIN [Concomitant]
     Indication: ANTIBIOTIC THERAPY
     Dosage: 100 MG, UNK

REACTIONS (2)
  - DEEP VEIN THROMBOSIS [None]
  - PULMONARY EMBOLISM [None]
